FAERS Safety Report 9360569 (Version 1)
Quarter: 2013Q2

REPORT INFORMATION
  Report Type: Spontaneous
  Country: DE (occurrence: DE)
  Receive Date: 20130621
  Receipt Date: 20130621
  Transmission Date: 20140414
  Serious: Yes (Life-Threatening, Hospitalization, Disabling, Other)
  Sender: FDA-Public Use
  Company Number: DE-SHIRE-ALL1-2013-03840

PATIENT
  Age: 59 Year
  Sex: Female
  Weight: 57 kg

DRUGS (2)
  1. XAGRID [Suspect]
     Indication: MYELOPROLIFERATIVE DISORDER
     Dosage: 0.5 MG, 1X/DAY:QD
     Route: 048
     Dates: start: 20120310, end: 20120312
  2. XAGRID [Suspect]
     Indication: THROMBOCYTOSIS

REACTIONS (3)
  - Myocardial infarction [Recovered/Resolved with Sequelae]
  - Hypotension [Unknown]
  - Cardiac failure [Unknown]
